FAERS Safety Report 25469711 (Version 1)
Quarter: 2025Q2

REPORT INFORMATION
  Report Type: Spontaneous
  Country: US (occurrence: None)
  Receive Date: 20250615
  Receipt Date: 20250615
  Transmission Date: 20250716
  Serious: Yes (Life-Threatening, Disabling)
  Sender: FDA-CTU
  Company Number: None

PATIENT
  Age: 23 Year
  Sex: Male
  Weight: 127.01 kg

DRUGS (3)
  1. DEVICE [Suspect]
     Active Substance: DEVICE
  2. HUMALOG [Suspect]
     Active Substance: INSULIN LISPRO
  3. GABAPENTIN [Concomitant]
     Active Substance: GABAPENTIN

REACTIONS (7)
  - Device information output issue [None]
  - Polyuria [None]
  - Polydipsia [None]
  - Vomiting [None]
  - Device information output issue [None]
  - Blood glucose decreased [None]
  - Device malfunction [None]

NARRATIVE: CASE EVENT DATE: 20250614
